FAERS Safety Report 13038090 (Version 1)
Quarter: 2016Q4

REPORT INFORMATION
  Report Type: Spontaneous
  Country: US (occurrence: US)
  Receive Date: 20161218
  Receipt Date: 20161218
  Transmission Date: 20170207
  Serious: No
  Sender: FDA-Public Use
  Company Number: US-ASTRAZENECA-2016SF30050

PATIENT
  Sex: Male
  Weight: 93.4 kg

DRUGS (1)
  1. BRILINTA [Suspect]
     Active Substance: TICAGRELOR
     Indication: STENT PLACEMENT
     Route: 048
     Dates: start: 20161118, end: 20161123

REACTIONS (3)
  - Breakthrough pain [Unknown]
  - Pruritus [Unknown]
  - Diarrhoea [Unknown]
